FAERS Safety Report 9827968 (Version 2)
Quarter: 2014Q1

REPORT INFORMATION
  Report Type: Spontaneous
  Country: US (occurrence: US)
  Receive Date: 20140117
  Receipt Date: 20140227
  Transmission Date: 20141002
  Serious: Yes (Hospitalization)
  Sender: FDA-Public Use
  Company Number: US-AMGEN-USASP2014003050

PATIENT
  Age: 92 Year
  Sex: Female

DRUGS (7)
  1. PROLIA [Suspect]
     Indication: OSTEOPOROSIS
     Dosage: UNK UNK, Q6MO
     Route: 065
     Dates: start: 201201
  2. LEVOTHYROXINE [Concomitant]
     Dosage: 50 MUG, QD
  3. ALEVE [Concomitant]
  4. CALCIUM [Concomitant]
     Dosage: 2000 MG, QD
  5. VITAMIN D                          /00107901/ [Concomitant]
  6. CENTRUM SILVER                     /02363801/ [Concomitant]
  7. CRANBERRY                          /01512301/ [Concomitant]

REACTIONS (9)
  - Diverticulitis [Recovered/Resolved]
  - Abscess [Recovered/Resolved]
  - Abscess rupture [Recovered/Resolved]
  - Abdominal pain [Recovered/Resolved]
  - Pyrexia [Recovered/Resolved]
  - Respiratory tract congestion [Unknown]
  - Oropharyngeal pain [Unknown]
  - Hypersensitivity [Unknown]
  - Rhinorrhoea [Unknown]
